FAERS Safety Report 4809915-3 (Version None)
Quarter: 2005Q4

REPORT INFORMATION
  Report Type: 
  Country: None (occurrence: None)
  Receive Date: 20051024
  Receipt Date: 20051024
  Transmission Date: 20060501
  Serious: Yes (Hospitalization, Other)
  Sender: FDA-Public Use
  Company Number: None

PATIENT
  Age: 64 Year
  Sex: Male
  Weight: 103 kg

DRUGS (23)
  1. OPTIMARK [Suspect]
     Indication: CORONARY ARTERY DISEASE
     Dosage: 41 CC   ONCE   IV BOLUS
     Route: 040
     Dates: start: 20031215, end: 20031215
  2. OPTIMARK [Suspect]
     Indication: VENTRICULAR DYSFUNCTION
     Dosage: 41 CC   ONCE   IV BOLUS
     Route: 040
     Dates: start: 20031215, end: 20031215
  3. GLUCOPHAGE [Concomitant]
  4. LIPITOR [Concomitant]
  5. TENORETIC 100 [Concomitant]
  6. NORVASC [Concomitant]
  7. IMDUR [Concomitant]
  8. ZANTAC [Concomitant]
  9. HUMALIN INSULIN [Concomitant]
  10. ASPIRIN [Concomitant]
  11. CEFUROXIME [Concomitant]
  12. XOPENEX [Concomitant]
  13. DOCUSATE SODIUM [Concomitant]
  14. ENOXAPARIN SODIUM [Concomitant]
  15. FUROSEMIDE [Concomitant]
  16. AVANDIA [Concomitant]
  17. AMIODARONE HCL [Concomitant]
  18. BENZONATATE [Concomitant]
  19. VAKSARTAN [Concomitant]
  20. DARVOCET [Concomitant]
  21. REGULAR INSULIN [Concomitant]
  22. LEXOTAN [Concomitant]
  23. TESSALON [Concomitant]

REACTIONS (2)
  - PLEURAL EFFUSION [None]
  - POST PROCEDURAL COMPLICATION [None]
